FAERS Safety Report 7895160-4 (Version None)
Quarter: 2011Q4

REPORT INFORMATION
  Report Type: 
  Country: None (occurrence: None)
  Receive Date: 20111106
  Receipt Date: 20110823
  Transmission Date: 20120403
  Serious: No
  Sender: FDA-Public Use
  Company Number: US-AMGEN-USASP2011043192

PATIENT
  Age: 52 Year
  Sex: Female
  Weight: 113.4 kg

DRUGS (9)
  1. PREDNISONE [Concomitant]
     Dosage: 2.5 MG, UNK
  2. VITAMIN D [Concomitant]
  3. FISH OIL [Concomitant]
  4. PREMARIN [Concomitant]
     Dosage: 0.3 MG, UNK
  5. TYLENOL-500 [Concomitant]
     Dosage: 500 MG, UNK
  6. CALCIUM + VITAMIN D [Concomitant]
  7. METHOTREXATE [Concomitant]
     Dosage: 2.5 MG, UNK
  8. FOLIC ACID [Concomitant]
     Dosage: 1 MG, UNK
  9. ENBREL [Suspect]
     Indication: PRODUCT USED FOR UNKNOWN INDICATION
     Dosage: 50 MG, QWK
     Route: 058

REACTIONS (2)
  - HEADACHE [None]
  - INJECTION SITE REACTION [None]
